FAERS Safety Report 15716659 (Version 2)
Quarter: 2018Q4

REPORT INFORMATION
  Report Type: Spontaneous
  Country: US (occurrence: US)
  Receive Date: 20181213
  Receipt Date: 20181225
  Transmission Date: 20190205
  Serious: Yes (Other)
  Sender: FDA-Public Use
  Company Number: US-ROCHE-2228082

PATIENT
  Age: 67 Year
  Sex: Male

DRUGS (1)
  1. LUCENTIS [Suspect]
     Active Substance: RANIBIZUMAB
     Indication: DIABETIC RETINAL OEDEMA
     Route: 065
     Dates: end: 20181109

REACTIONS (7)
  - Eye pain [Recovering/Resolving]
  - Corneal oedema [Recovering/Resolving]
  - Papilloedema [Recovering/Resolving]
  - Hypotonia [Recovering/Resolving]
  - Visual impairment [Recovering/Resolving]
  - Choroidal effusion [Recovering/Resolving]
  - Macular oedema [Recovering/Resolving]

NARRATIVE: CASE EVENT DATE: 20181111
